FAERS Safety Report 21364517 (Version 1)
Quarter: 2022Q3

REPORT INFORMATION
  Report Type: Spontaneous
  Country: BR (occurrence: BR)
  Receive Date: 20220922
  Receipt Date: 20220922
  Transmission Date: 20221027
  Serious: Yes (Hospitalization)
  Sender: FDA-Public Use
  Company Number: BR-NOVARTISPH-NVSC2022BR209265

PATIENT
  Age: 67 Year
  Sex: Male

DRUGS (1)
  1. ACLASTA [Suspect]
     Active Substance: ZOLEDRONIC ACID
     Indication: Osteitis deformans
     Dosage: UNK
     Route: 065
     Dates: start: 20220906

REACTIONS (11)
  - Hypokinesia [Unknown]
  - Feeling cold [Recovering/Resolving]
  - Malaise [Not Recovered/Not Resolved]
  - Chills [Recovering/Resolving]
  - Back pain [Recovering/Resolving]
  - Pain [Recovering/Resolving]
  - Pyrexia [Recovering/Resolving]
  - Headache [Not Recovered/Not Resolved]
  - Spinal pain [Unknown]
  - Nausea [Unknown]
  - Arthralgia [Recovering/Resolving]

NARRATIVE: CASE EVENT DATE: 20220906
